FAERS Safety Report 8401095-0 (Version None)
Quarter: 2012Q2

REPORT INFORMATION
  Report Type: 
  Country: None (occurrence: None)
  Receive Date: 20120601
  Receipt Date: 20120530
  Transmission Date: 20120825
  Serious: No
  Sender: FDA-Public Use
  Company Number: US-PFIZER INC-2012131171

PATIENT
  Sex: Male

DRUGS (3)
  1. CHANTIX [Suspect]
     Dosage: UNK
     Dates: start: 20120101
  2. CHANTIX [Suspect]
     Dosage: UNK
  3. CHANTIX [Suspect]
     Indication: SMOKING CESSATION THERAPY
     Dosage: UNK

REACTIONS (6)
  - NASOPHARYNGITIS [None]
  - ABDOMINAL DISCOMFORT [None]
  - TOBACCO USER [None]
  - FATIGUE [None]
  - DRUG INEFFECTIVE [None]
  - DIARRHOEA [None]
